FAERS Safety Report 23688805 (Version 1)
Quarter: 2024Q1

REPORT INFORMATION
  Report Type: Report from Study
  Country: NL (occurrence: NL)
  Receive Date: 20240329
  Receipt Date: 20240329
  Transmission Date: 20240410
  Serious: Yes (Hospitalization, Other)
  Sender: FDA-Public Use
  Company Number: NL-GILEAD-2024-0666665

PATIENT
  Age: 64 Year
  Sex: Female

DRUGS (5)
  1. SACITUZUMAB GOVITECAN-HZIY [Suspect]
     Active Substance: SACITUZUMAB GOVITECAN-HZIY
     Indication: Triple negative breast cancer
     Dosage: 1000 MG C1 D1 AND D8
     Route: 065
     Dates: start: 202312, end: 202312
  2. SACITUZUMAB GOVITECAN-HZIY [Suspect]
     Active Substance: SACITUZUMAB GOVITECAN-HZIY
     Dosage: 800 MG, C2 D1 AND D8
     Route: 065
     Dates: start: 202401, end: 202401
  3. SACITUZUMAB GOVITECAN-HZIY [Suspect]
     Active Substance: SACITUZUMAB GOVITECAN-HZIY
     Dosage: 600 MG C3 D1 AND D8
     Route: 065
     Dates: start: 202402, end: 202402
  4. SACITUZUMAB GOVITECAN-HZIY [Suspect]
     Active Substance: SACITUZUMAB GOVITECAN-HZIY
     Dosage: 600 MG C4 D1 AND D8
     Route: 065
     Dates: start: 202403, end: 202403
  5. SACITUZUMAB GOVITECAN-HZIY [Suspect]
     Active Substance: SACITUZUMAB GOVITECAN-HZIY
     Dosage: C5 D1 AND D8
     Route: 065
     Dates: start: 202401, end: 202401

REACTIONS (9)
  - Campylobacter gastroenteritis [Unknown]
  - Escherichia urinary tract infection [Unknown]
  - Stomatitis [Unknown]
  - Neutropenia [Unknown]
  - Anaemia [Unknown]
  - Thrombocytopenia [Unknown]
  - Pneumonia [Unknown]
  - Mucosal inflammation [Unknown]
  - Toxicity to various agents [Unknown]
